FAERS Safety Report 13073437 (Version 4)
Quarter: 2019Q1

REPORT INFORMATION
  Report Type: Report from Study
  Country: US (occurrence: US)
  Receive Date: 20161229
  Receipt Date: 20190330
  Transmission Date: 20190417
  Serious: Yes (Other)
  Sender: FDA-Public Use
  Company Number: PHHY2016US019551

PATIENT
  Age: 27 Year
  Sex: Female

DRUGS (2)
  1. GILENYA [Suspect]
     Active Substance: FINGOLIMOD HYDROCHLORIDE
     Indication: MULTIPLE SCLEROSIS
     Dosage: UNK, QD
     Route: 048
  2. ACCUTANE [Concomitant]
     Active Substance: ISOTRETINOIN
     Indication: ACNE
     Dosage: UNK
     Route: 065
     Dates: start: 20160127

REACTIONS (5)
  - Alanine aminotransferase increased [Unknown]
  - Melanocytic naevus [Unknown]
  - Paraesthesia [Unknown]
  - Lymphocyte count decreased [Unknown]
  - Lentigo [Unknown]

NARRATIVE: CASE EVENT DATE: 20160127
